FAERS Safety Report 4627816-0 (Version None)
Quarter: 2005Q2

REPORT INFORMATION
  Report Type: 
  Country: None (occurrence: None)
  Receive Date: 20050406
  Receipt Date: 20050113
  Transmission Date: 20051028
  Serious: Yes (Other)
  Sender: FDA-Public Use
  Company Number: 200510370US

PATIENT
  Sex: Female

DRUGS (2)
  1. LANTUS [Suspect]
     Indication: DIABETES MELLITUS INSULIN-DEPENDENT
     Dosage: DOSE UNIT: UNITS
     Dates: start: 20041208
  2. NOVALOG [Concomitant]
     Dosage: DOSE: NOT PROVIDED

REACTIONS (5)
  - BACK PAIN [None]
  - FLUID RETENTION [None]
  - HYPERGLYCAEMIA [None]
  - RENAL DISORDER [None]
  - RENAL IMPAIRMENT [None]
